FAERS Safety Report 7126517-7 (Version None)
Quarter: 2010Q4

REPORT INFORMATION
  Report Type: 
  Country: None (occurrence: None)
  Receive Date: 20101129
  Receipt Date: 20100923
  Transmission Date: 20110411
  Serious: No
  Sender: FDA-Public Use
  Company Number: US-MYLANLABS-2010S1017506

PATIENT
  Age: 65 Year
  Sex: Female

DRUGS (9)
  1. LANSOPRAZOLE [Suspect]
     Indication: DYSPEPSIA
     Route: 048
     Dates: start: 20100201, end: 20100601
  2. TRIAMTERENE AND HYDROCHLOROTHIAZIDE [Concomitant]
  3. DETROL LA [Concomitant]
  4. ESTRADIOL [Concomitant]
  5. FOLIC ACID [Concomitant]
  6. POTASSIUM CHLORIDE [Concomitant]
  7. ALLEGRA [Concomitant]
  8. METHOTREXATE [Concomitant]
  9. METFORMIN [Concomitant]

REACTIONS (3)
  - BALANCE DISORDER [None]
  - DIZZINESS [None]
  - NAUSEA [None]
